FAERS Safety Report 11430575 (Version 1)
Quarter: 2015Q3

REPORT INFORMATION
  Report Type: Spontaneous
  Country: US (occurrence: US)
  Receive Date: 20150828
  Receipt Date: 20150828
  Transmission Date: 20151125
  Serious: No
  Sender: FDA-Public Use
  Company Number: PHEH2014US016461

PATIENT
  Sex: Female

DRUGS (8)
  1. LAMOTRIGINE. [Concomitant]
     Active Substance: LAMOTRIGINE
     Dosage: 2 DF, QD
     Route: 048
  2. VIVELLE DOT [Suspect]
     Active Substance: ESTRADIOL
     Dosage: UNK UKN, UNK
     Route: 062
  3. TOPIRAMAT [Concomitant]
     Active Substance: TOPIRAMATE
     Dosage: 2 DF, QD
     Route: 048
  4. VENLAFAXINE [Concomitant]
     Active Substance: VENLAFAXINE HYDROCHLORIDE
     Dosage: 1 DF, QD
  5. SERTRALINE [Concomitant]
     Active Substance: SERTRALINE HYDROCHLORIDE
     Dosage: 2 DF, QD
     Route: 048
  6. VIVELLE DOT [Suspect]
     Active Substance: ESTRADIOL
     Indication: HORMONE REPLACEMENT THERAPY
     Dosage: 0.1MG, BIW
     Route: 062
  7. MAXALT [Concomitant]
     Active Substance: RIZATRIPTAN BENZOATE
     Dosage: UNK UKN, UNK
     Route: 048
  8. ESTRADIOL. [Suspect]
     Active Substance: ESTRADIOL
     Dosage: UNK UKN, UNK
     Route: 048

REACTIONS (2)
  - Product adhesion issue [Unknown]
  - Migraine [Unknown]
